FAERS Safety Report 23362521 (Version 2)
Quarter: 2024Q1

REPORT INFORMATION
  Report Type: Spontaneous
  Country: US (occurrence: US)
  Receive Date: 20240103
  Receipt Date: 20240201
  Transmission Date: 20240410
  Serious: No
  Sender: FDA-Public Use
  Company Number: US-BIOVITRUM-2023-US-021621

PATIENT
  Age: 8 Month
  Sex: Female
  Weight: 7.43 kg

DRUGS (8)
  1. SYNAGIS [Suspect]
     Active Substance: PALIVIZUMAB
     Indication: Low birth weight baby
     Dosage: ONCE A MONTH?SYNAGIS 50 MG SDV/INJ PF 0.5 ML 1^S; SYNAGIS 100 MG SDV/INJ PF 1 ML 1^S
     Route: 030
     Dates: start: 20231108
  2. SYNAGIS [Suspect]
     Active Substance: PALIVIZUMAB
     Indication: Premature baby
  3. SYNAGIS [Suspect]
     Active Substance: PALIVIZUMAB
     Indication: Intraventricular haemorrhage neonatal
  4. SYNAGIS [Suspect]
     Active Substance: PALIVIZUMAB
     Indication: Necrotising colitis
  5. SYNAGIS [Suspect]
     Active Substance: PALIVIZUMAB
     Indication: Metabolic disorder
  6. SYNAGIS [Suspect]
     Active Substance: PALIVIZUMAB
     Indication: Failure to thrive
  7. VITAMINS [Concomitant]
     Active Substance: VITAMINS
     Indication: Product used for unknown indication
     Dosage: 250-50/ML DROPS
  8. ZINC CHLORIDE [Concomitant]
     Active Substance: ZINC CHLORIDE
     Indication: Product used for unknown indication
     Dosage: 1 MG/ML

REACTIONS (1)
  - Rash [Unknown]
